FAERS Safety Report 26169610 (Version 1)
Quarter: 2025Q4

REPORT INFORMATION
  Report Type: Spontaneous
  Country: US (occurrence: None)
  Receive Date: 20251216
  Receipt Date: 20251216
  Transmission Date: 20260117
  Serious: Yes (Hospitalization)
  Sender: FDA-CTU
  Company Number: None

PATIENT
  Age: 63 Year
  Sex: Female
  Weight: 77 kg

DRUGS (2)
  1. LENVIMA [Suspect]
     Active Substance: LENVATINIB
  2. KEYTRUDA [Suspect]
     Active Substance: PEMBROLIZUMAB

REACTIONS (2)
  - Seizure [None]
  - Subarachnoid haemorrhage [None]

NARRATIVE: CASE EVENT DATE: 20251215
